FAERS Safety Report 7162281-3 (Version None)
Quarter: 2010Q4

REPORT INFORMATION
  Report Type: 
  Country: None (occurrence: None)
  Receive Date: 20101215
  Receipt Date: 20091001
  Transmission Date: 20110411
  Serious: Yes (Other)
  Sender: FDA-Public Use
  Company Number: PH-PFIZER INC-2009277309

PATIENT
  Age: 67 Year

DRUGS (1)
  1. LYRICA [Suspect]
     Dosage: 75 MG, 1X/DAY

REACTIONS (2)
  - EYELID OEDEMA [None]
  - RASH [None]
